FAERS Safety Report 6537327-3 (Version None)
Quarter: 2010Q1

REPORT INFORMATION
  Report Type: 
  Country: None (occurrence: None)
  Receive Date: 20100107
  Receipt Date: 20091223
  Transmission Date: 20100710
  Serious: Yes (Hospitalization)
  Sender: FDA-Public Use
  Company Number: GB-DEXPHARM-20092214

PATIENT
  Age: 48 Year
  Sex: Female

DRUGS (6)
  1. LOSEC [Suspect]
     Indication: PROPHYLAXIS AGAINST GASTROINTESTINAL ULCER
     Dosage: 20 MG MILLIGRAM(S) 1 IN 1 DAY ORAL
     Route: 048
     Dates: start: 20091121, end: 20091121
  2. CARBAMAZEPINE [Concomitant]
  3. CETIRIZINE HCL [Concomitant]
  4. CO-CODAMOL [Concomitant]
  5. CYCLIZINE [Concomitant]
  6. LEVETIRACETAM [Concomitant]

REACTIONS (1)
  - JOINT SWELLING [None]
